FAERS Safety Report 4916310-5 (Version None)
Quarter: 2006Q1

REPORT INFORMATION
  Report Type: 
  Country: None (occurrence: None)
  Receive Date: 20060217
  Receipt Date: 20060207
  Transmission Date: 20060701
  Serious: Yes (Hospitalization, Disabling, Other)
  Sender: FDA-Public Use
  Company Number: US-MERCK-0602USA02124

PATIENT
  Age: 70 Year
  Sex: Male
  Weight: 100 kg

DRUGS (12)
  1. VIOXX [Suspect]
     Indication: ARTHRITIS
     Route: 048
     Dates: start: 20011001, end: 20040101
  2. ASPIRIN [Concomitant]
     Route: 065
  3. ALTACE [Concomitant]
     Indication: HYPERTENSION
     Route: 065
  4. LIPITOR [Concomitant]
     Indication: BLOOD PRESSURE ABNORMAL
     Route: 065
  5. PLETAL [Concomitant]
     Route: 065
  6. NORVASC [Concomitant]
     Indication: HYPERTENSION
     Route: 065
  7. NORVASC [Concomitant]
     Indication: CHEST PAIN
     Route: 065
  8. FOLIC ACID [Concomitant]
     Route: 065
  9. LOPRESSOR [Concomitant]
     Indication: CHEST PAIN
     Route: 065
  10. LOPRESSOR [Concomitant]
     Indication: HYPERTENSION
     Route: 065
  11. NITROSTAT [Concomitant]
     Indication: CHEST PAIN
     Route: 060
  12. NEXIUM [Concomitant]
     Route: 065

REACTIONS (8)
  - ARTHRITIS [None]
  - CARDIAC FAILURE [None]
  - CEREBROVASCULAR ACCIDENT [None]
  - CHEST PAIN [None]
  - CORONARY ARTERY DISEASE [None]
  - MYOCARDIAL INFARCTION [None]
  - PAIN [None]
  - TRANSIENT ISCHAEMIC ATTACK [None]
